FAERS Safety Report 4959668-3 (Version None)
Quarter: 2006Q1

REPORT INFORMATION
  Report Type: 
  Country: None (occurrence: None)
  Receive Date: 20060328
  Receipt Date: 20060317
  Transmission Date: 20060701
  Serious: Yes (Other)
  Sender: FDA-Public Use
  Company Number: 2006038236

PATIENT
  Age: 7 Year
  Sex: Male

DRUGS (7)
  1. ZYRTEC [Suspect]
     Indication: MULTIPLE ALLERGIES
     Dates: start: 20050513, end: 20060101
  2. FLOVENT [Suspect]
     Indication: MULTIPLE ALLERGIES
     Dosage: 88 MCG (44 MCG, 2 IN 1 D), INHALATION
     Route: 055
     Dates: start: 20050513, end: 20060101
  3. VENTOLIN [Suspect]
     Indication: MULTIPLE ALLERGIES
     Dates: start: 20050513, end: 20060101
  4. RHINOCORT [Concomitant]
  5. ZITHROMAX [Concomitant]
  6. SINGULAIR ^MERCK^ (MONTELUKAST SODIUM) [Concomitant]
  7. AMOXICILLIN TRIHYDRATE/CLAVULANATE POTASSIUM (AMOXICILLIN TRIHYDRATE, [Concomitant]

REACTIONS (5)
  - AGGRESSION [None]
  - ANXIETY [None]
  - EDUCATIONAL PROBLEM [None]
  - IRRITABILITY [None]
  - PERSONALITY CHANGE [None]
